FAERS Safety Report 5526225-X (Version None)
Quarter: 2007Q4

REPORT INFORMATION
  Report Type: 
  Country: None (occurrence: None)
  Receive Date: 20071127
  Receipt Date: 20071116
  Transmission Date: 20080405
  Serious: Yes (Hospitalization, Other)
  Sender: FDA-Public Use
  Company Number: PHBS2007JP18703

PATIENT
  Age: 35 Year
  Sex: Male

DRUGS (1)
  1. TEGRETOL [Suspect]
     Indication: CONVULSION
     Dates: start: 20060801

REACTIONS (20)
  - ALANINE AMINOTRANSFERASE INCREASED [None]
  - ASPARTATE AMINOTRANSFERASE INCREASED [None]
  - BACK PAIN [None]
  - C-REACTIVE PROTEIN INCREASED [None]
  - DRUG RASH WITH EOSINOPHILIA AND SYSTEMIC SYMPTOMS [None]
  - EATING DISORDER [None]
  - EOSINOPHIL COUNT DECREASED [None]
  - ERYTHEMA [None]
  - FACE OEDEMA [None]
  - HEPATIC FUNCTION ABNORMAL [None]
  - MALAISE [None]
  - MOVEMENT DISORDER [None]
  - PALLOR [None]
  - PIGMENTATION DISORDER [None]
  - PURPURA [None]
  - PYREXIA [None]
  - RASH PUSTULAR [None]
  - SKIN EXFOLIATION [None]
  - SPONDYLITIS [None]
  - TONSILLITIS [None]
